FAERS Safety Report 10954926 (Version 2)
Quarter: 2017Q2

REPORT INFORMATION
  Report Type: Report from Study
  Country: AR (occurrence: AR)
  Receive Date: 20150325
  Receipt Date: 20170609
  Transmission Date: 20170829
  Serious: Yes (Disabling)
  Sender: FDA-Public Use
  Company Number: PHHY2015AR034801

PATIENT
  Sex: Female

DRUGS (1)
  1. DIOVAN D [Suspect]
     Active Substance: HYDROCHLOROTHIAZIDE\VALSARTAN
     Indication: HYPERTENSION
     Dosage: 1 DF (HYDROCHLOROTHIAZIDE 25 AND VALSARTAN 320, UNIT NOT PROVIDED), QD
     Route: 065

REACTIONS (3)
  - Osteoarthritis [Unknown]
  - Concomitant disease aggravated [Unknown]
  - Memory impairment [Unknown]
